FAERS Safety Report 4578648-3 (Version None)
Quarter: 2005Q1

REPORT INFORMATION
  Report Type: 
  Country: None (occurrence: None)
  Receive Date: 20050207
  Receipt Date: 20050207
  Transmission Date: 20050727
  Serious: Yes (Life-Threatening, Hospitalization)
  Sender: FDA-Public Use
  Company Number: None

PATIENT
  Age: 44 Year
  Sex: Female
  Weight: 70.7611 kg

DRUGS (5)
  1. ZONISAMIDE [Suspect]
     Indication: BACK PAIN
     Dosage: 1
     Dates: start: 20041201, end: 20051201
  2. DIAZEPAM [Concomitant]
  3. GABAPENTIN [Concomitant]
  4. METHADONE [Concomitant]
  5. LANSOPRAZOLE [Concomitant]

REACTIONS (1)
  - STEVENS-JOHNSON SYNDROME [None]
